FAERS Safety Report 15834073 (Version 1)
Quarter: 2019Q1

REPORT INFORMATION
  Report Type: Spontaneous
  Country: DE (occurrence: DE)
  Receive Date: 20190116
  Receipt Date: 20190116
  Transmission Date: 20190417
  Serious: Yes (Other)
  Sender: FDA-Public Use
  Company Number: DE-SILVERGATE PHARMACEUTICALS, INC.-2019SIL00001

PATIENT
  Age: 74 Year
  Sex: Female
  Weight: 71 kg

DRUGS (4)
  1. ACETYLSALICYLIC ACID [Suspect]
     Active Substance: ASPIRIN
     Route: 065
  2. HYDROCHLOROTHIAZIDE. [Suspect]
     Active Substance: HYDROCHLOROTHIAZIDE
     Route: 065
  3. PANTOPRAZOLE [Suspect]
     Active Substance: PANTOPRAZOLE
     Route: 065
  4. METHOTREXATE. [Suspect]
     Active Substance: METHOTREXATE
     Indication: PSORIASIS
     Dosage: 15 MG, 1X/WEEK
     Route: 065

REACTIONS (9)
  - Toxicity to various agents [Unknown]
  - Drug interaction [Unknown]
  - Sepsis [Unknown]
  - Granulocytopenia [Unknown]
  - Neutropenia [Unknown]
  - Bone marrow failure [Unknown]
  - Nephropathy toxic [Unknown]
  - Overdose [Unknown]
  - Epidermal necrosis [Unknown]
